FAERS Safety Report 14489801 (Version 1)
Quarter: 2018Q1

REPORT INFORMATION
  Report Type: Spontaneous
  Country: US (occurrence: US)
  Receive Date: 20180206
  Receipt Date: 20180206
  Transmission Date: 20180509
  Serious: Yes (Death, Other)
  Sender: FDA-Public Use
  Company Number: US-CIPLA LTD.-2018US02810

PATIENT

DRUGS (5)
  1. ECULIZUMAB [Suspect]
     Active Substance: ECULIZUMAB
     Dosage: 1200 MG, AT WEEK 5
     Route: 042
  2. ECULIZUMAB [Suspect]
     Active Substance: ECULIZUMAB
     Dosage: 1200 MG, EVERY TWO WEEKS FOR A TOTAL OF EIGHT MONTHS
  3. CIPROFLOXACIN. [Suspect]
     Active Substance: CIPROFLOXACIN
     Indication: PROPHYLAXIS
     Dosage: 250 MG, DAILY
     Route: 048
  4. GEMCITABINE [Suspect]
     Active Substance: GEMCITABINE\GEMCITABINE HYDROCHLORIDE
     Indication: ADENOCARCINOMA PANCREAS
     Dosage: 1000 MG/M2, EVERY WEEK FOR THREE WEEKS A MONTH, CYCLICAL
     Route: 042
  5. ECULIZUMAB [Suspect]
     Active Substance: ECULIZUMAB
     Indication: ADENOCARCINOMA PANCREAS
     Dosage: 900 MG, EVERY WEEK FOR FOUR WEEKS
     Route: 042

REACTIONS (3)
  - Thrombotic microangiopathy [Recovering/Resolving]
  - Haemolytic uraemic syndrome [Unknown]
  - Oncologic complication [Fatal]
